FAERS Safety Report 6552027 (Version 2)
Quarter: 2013Q1

REPORT INFORMATION
  Report Type: Spontaneous
  Country: US (occurrence: US)
  Receive Date: 20080213
  Receipt Date: 20130321
  Transmission Date: 20140127
  Serious: Yes (Other)
  Sender: FDA-Public Use
  Company Number: US-JNJFOC-20080202191

PATIENT
  Sex: Female
  Weight: 81.65 kg

DRUGS (7)
  1. MOTRIN [Suspect]
     Indication: FIBROMYALGIA
     Route: 048
  2. MOTRIN [Suspect]
     Indication: FIBROMYALGIA
     Route: 048
     Dates: start: 2004
  3. IMODIUM [Concomitant]
  4. SYNTHROID [Concomitant]
     Indication: THYROID DISORDER
  5. TOPROL [Concomitant]
     Indication: HYPERTENSION
  6. LORAZEPAM [Concomitant]
  7. VITAMIN E [Concomitant]

REACTIONS (3)
  - Gait disturbance [Not Recovered/Not Resolved]
  - Arthralgia [Not Recovered/Not Resolved]
  - Weight decreased [Unknown]
